FAERS Safety Report 8788025 (Version 3)
Quarter: 2012Q4

REPORT INFORMATION
  Report Type: 
  Country: US (occurrence: US)
  Receive Date: 20120914
  Receipt Date: 20121023
  Transmission Date: 20130627
  Serious: Yes (Hospitalization, Other)
  Sender: FDA-Public Use
  Company Number: US-PFIZER INC-2012221460

PATIENT
  Age: 64 Year
  Sex: Female
  Weight: 42 kg

DRUGS (8)
  1. PREMARIN [Suspect]
     Indication: HORMONE REPLACEMENT THERAPY
     Dosage: 0.625 mg, daily
     Route: 048
     Dates: start: 1982
  2. PREMARIN [Suspect]
     Indication: HORMONE REPLACEMENT THERAPY
     Dosage: UNK
     Route: 067
     Dates: start: 2010
  3. PREMARIN [Suspect]
     Route: 067
  4. XANAX [Suspect]
     Indication: STRESS
     Dosage: 1 mg, 2x/day
  5. XANAX [Suspect]
     Indication: ANXIETY
  6. IBUPROFEN [Concomitant]
     Indication: ARTHRITIS
     Dosage: 2 mg, as needed
  7. NEURONTIN [Concomitant]
     Indication: MUSCLE SPASMS
     Dosage: 300 mg, 2x/day
  8. QUININE SULPHATE [Concomitant]
     Indication: MUSCLE SPASMS
     Dosage: UNK

REACTIONS (9)
  - Heart rate increased [Recovered/Resolved]
  - Cardiac failure congestive [Recovered/Resolved]
  - Vomiting [Recovered/Resolved]
  - Feeling abnormal [Recovered/Resolved]
  - Weight increased [Recovered/Resolved]
  - Malaise [Unknown]
  - Emotional disorder [Unknown]
  - Nausea [Unknown]
  - Asthenia [Unknown]
